FAERS Safety Report 13906057 (Version 1)
Quarter: 2017Q3

REPORT INFORMATION
  Report Type: Spontaneous
  Country: US (occurrence: None)
  Receive Date: 20170822
  Receipt Date: 20170822
  Transmission Date: 20171127
  Serious: No
  Sender: FDA-Public Use
  Company Number: None

PATIENT
  Age: 61 Year
  Sex: Female

DRUGS (1)
  1. HARVONI [Suspect]
     Active Substance: LEDIPASVIR\SOFOSBUVIR
     Indication: HEPATITIS C
     Dosage: 90-400 MG QD ORAL?4/25/2017 - 9/18/2017
     Route: 048
     Dates: start: 20170425

REACTIONS (2)
  - Fatigue [None]
  - Vitreous floaters [None]

NARRATIVE: CASE EVENT DATE: 20170815
